FAERS Safety Report 4937395-6 (Version None)
Quarter: 2006Q1

REPORT INFORMATION
  Report Type: 
  Country: None (occurrence: None)
  Receive Date: 20060302
  Receipt Date: 20060210
  Transmission Date: 20060701
  Serious: Yes (Hospitalization, Disabling)
  Sender: FDA-Public Use
  Company Number: AT200602000917

PATIENT
  Age: 57 Year
  Sex: Male
  Weight: 90 kg

DRUGS (14)
  1. GEMZAR [Suspect]
     Indication: NON-SMALL CELL LUNG CANCER
     Dates: start: 20051025
  2. CISPLATIN [Concomitant]
  3. TAXOTERE [Concomitant]
  4. CARBOPLATIN [Concomitant]
  5. NORMOXIN (MOXONIDINE) [Concomitant]
  6. NORVASC/DEN(AMLODIPINE BESILATE) [Concomitant]
  7. AQUAPHORIL (XIPAMIDE) [Concomitant]
  8. NEXIUM [Concomitant]
  9. MUCOBENE (ACETYLCYSTEINE) [Concomitant]
  10. OXIS TURBUHALER (FORMOTEROL FUMARATE) [Concomitant]
  11. ERYPO (EPOETIN ALFA) [Concomitant]
  12. ACETYLSALICYLIC ACID SRT [Concomitant]
  13. GEWACALM (DIAZEPAM) [Concomitant]
  14. ANXIOLIT [Concomitant]

REACTIONS (2)
  - HAEMODIALYSIS [None]
  - NEPHRITIS INTERSTITIAL [None]
